FAERS Safety Report 20839182 (Version 2)
Quarter: 2022Q2

REPORT INFORMATION
  Report Type: Report from Study
  Country: US (occurrence: US)
  Receive Date: 20220517
  Receipt Date: 20220524
  Transmission Date: 20220720
  Serious: Yes (Hospitalization)
  Sender: FDA-Public Use
  Company Number: US-ABBVIE-22K-163-4396797-00

PATIENT
  Sex: Female

DRUGS (1)
  1. VENCLEXTA [Suspect]
     Active Substance: VENETOCLAX
     Indication: Chronic myeloid leukaemia
     Route: 048

REACTIONS (5)
  - Neoplasm malignant [Unknown]
  - Miliaria [Unknown]
  - Lymphadenopathy [Unknown]
  - Rash [Recovering/Resolving]
  - Pyrexia [Unknown]
